FAERS Safety Report 24978402 (Version 2)
Quarter: 2025Q1

REPORT INFORMATION
  Report Type: Spontaneous
  Country: US (occurrence: US)
  Receive Date: 20250217
  Receipt Date: 20250217
  Transmission Date: 20250409
  Serious: Yes (Other)
  Sender: AMGEN
  Company Number: US-AMGEN-USASP2025028569

PATIENT
  Age: 21 Year
  Sex: Female

DRUGS (5)
  1. INFLIXIMAB [Suspect]
     Active Substance: INFLIXIMAB
     Indication: Cystoid macular oedema
     Route: 065
  2. ADALIMUMAB [Suspect]
     Active Substance: ADALIMUMAB
     Indication: Cystoid macular oedema
     Route: 065
  3. TOCILIZUMAB [Concomitant]
     Active Substance: TOCILIZUMAB
     Indication: Uveitis
     Dosage: 8 MILLIGRAM/KILOGRAM, Q2WK
     Route: 040
     Dates: start: 201706
  4. TOCILIZUMAB [Concomitant]
     Active Substance: TOCILIZUMAB
     Dosage: 162 MILLIGRAM, QWK
     Route: 058
     Dates: start: 202106
  5. TOCILIZUMAB [Concomitant]
     Active Substance: TOCILIZUMAB
     Dosage: 8.8 MILLIGRAM/KILOGRAM, Q4WK
     Route: 040
     Dates: start: 202206

REACTIONS (3)
  - Cystoid macular oedema [Recovering/Resolving]
  - Drug ineffective [Unknown]
  - Off label use [Unknown]
